FAERS Safety Report 12531536 (Version 2)
Quarter: 2016Q3

REPORT INFORMATION
  Report Type: Spontaneous
  Country: US (occurrence: US)
  Receive Date: 20160706
  Receipt Date: 20160801
  Transmission Date: 20161109
  Serious: Yes (Other)
  Sender: FDA-Public Use
  Company Number: US-BAYER-2016-128168

PATIENT
  Age: 48 Year

DRUGS (1)
  1. CIPRO [Suspect]
     Active Substance: CIPROFLOXACIN HYDROCHLORIDE
     Dosage: UNK

REACTIONS (9)
  - Arrhythmia [None]
  - Psychotic disorder [None]
  - General physical health deterioration [None]
  - Myocardial infarction [None]
  - Hypersensitivity [None]
  - Seizure [None]
  - Atrial fibrillation [None]
  - Cardiac disorder [None]
  - Apparent death [None]
